FAERS Safety Report 21285206 (Version 1)
Quarter: 2022Q3

REPORT INFORMATION
  Report Type: Spontaneous
  Country: IT (occurrence: IT)
  Receive Date: 20220902
  Receipt Date: 20220902
  Transmission Date: 20221027
  Serious: Yes (Other)
  Sender: FDA-Public Use
  Company Number: None

PATIENT
  Age: 25 Year
  Sex: Male
  Weight: 82 kg

DRUGS (1)
  1. PROPECIA [Suspect]
     Active Substance: FINASTERIDE
     Indication: Alopecia
     Dosage: UNK, Q24H
     Route: 048
     Dates: start: 202111, end: 202204

REACTIONS (5)
  - Loss of libido [Not Recovered/Not Resolved]
  - Testis discomfort [Not Recovered/Not Resolved]
  - Sexual dysfunction [Not Recovered/Not Resolved]
  - Erectile dysfunction [Not Recovered/Not Resolved]
  - Spermatozoa abnormal [Not Recovered/Not Resolved]

NARRATIVE: CASE EVENT DATE: 20211101
